FAERS Safety Report 20857935 (Version 6)
Quarter: 2022Q3

REPORT INFORMATION
  Report Type: Report from Study
  Country: CN (occurrence: CN)
  Receive Date: 20220521
  Receipt Date: 20220718
  Transmission Date: 20221027
  Serious: Yes (Hospitalization)
  Sender: FDA-Public Use
  Company Number: CN-BRISTOL-MYERS SQUIBB COMPANY-2022-037066

PATIENT
  Age: 73 Year
  Sex: Male
  Weight: 69 kg

DRUGS (26)
  1. AZACITIDINE [Suspect]
     Active Substance: AZACITIDINE
     Indication: Myelodysplastic syndrome
     Dosage: 7 DAYS WITHIN THE FIRST 9 CALENDAR DAYS OF EACH 28-DAY CYCLE (75 MG/M2,1 IN 1 D
     Route: 058
     Dates: start: 20220415
  2. VENETOCLAX [Suspect]
     Active Substance: VENETOCLAX
     Indication: Myelodysplastic syndrome
     Dosage: DAYS 1 - 14 OF EACH 28-DAY CYCLE
     Route: 048
     Dates: start: 20220415
  3. POSACONAZOLE [Concomitant]
     Active Substance: POSACONAZOLE
     Indication: Pneumonia
     Route: 048
     Dates: start: 20220412
  4. POSACONAZOLE [Concomitant]
     Active Substance: POSACONAZOLE
     Indication: Prophylaxis
  5. SPIRONOLACTONE [Concomitant]
     Active Substance: SPIRONOLACTONE
     Indication: Oedema peripheral
     Dosage: 1 IN 1 D
     Route: 048
     Dates: start: 20220419, end: 20220506
  6. COENZYME Q10 [Concomitant]
     Active Substance: DIETARY SUPPLEMENT\UBIDECARENONE
     Indication: Prophylaxis
     Dosage: 3 IN 1 D
     Route: 048
  7. GLYCYRRHIZIN [Concomitant]
     Active Substance: GLYCYRRHIZIN
     Indication: Transaminases increased
     Dosage: 3 IN 1 D
     Route: 048
     Dates: start: 20220504
  8. SHENQI SHIYIWEI KELI [Concomitant]
     Indication: Anaemia
     Dosage: 3 IN 1 D
     Route: 048
     Dates: start: 20220422, end: 20220510
  9. QIAN LIE TONG JIAO NANG [Concomitant]
     Indication: Benign prostatic hyperplasia
     Dosage: 3 IN 1 D
     Route: 048
     Dates: start: 20220426, end: 20220505
  10. FINASTERIDE [Concomitant]
     Active Substance: FINASTERIDE
     Indication: Benign prostatic hyperplasia
     Dosage: 1 IN 1 D
     Route: 048
     Dates: start: 20220426, end: 20220505
  11. GLYCYRRHIZIN [Concomitant]
     Active Substance: GLYCYRRHIZIN
     Indication: Transaminases increased
     Dosage: 2 SLICE (3 IN 1 D)
     Route: 048
     Dates: start: 20220504, end: 20220526
  12. MOXIFLOXACIN [Concomitant]
     Active Substance: MOXIFLOXACIN
     Indication: Infection prophylaxis
     Dosage: 1 IN 1 D
     Route: 048
  13. MOXIFLOXACIN [Concomitant]
     Active Substance: MOXIFLOXACIN
     Route: 048
     Dates: start: 20220324
  14. MOXIFLOXACIN [Concomitant]
     Active Substance: MOXIFLOXACIN
     Dosage: 1 IN 1 D
     Route: 048
  15. COENZYME Q10 SLICE [Concomitant]
     Indication: Nutritional supplementation
     Dosage: 3 IN 1 D
     Route: 048
     Dates: start: 20220412
  16. COENZYME Q10 SLICE [Concomitant]
     Indication: Prophylaxis
  17. CALCIUM CARBONATE [Concomitant]
     Active Substance: CALCIUM CARBONATE
     Indication: Supplementation therapy
     Route: 048
     Dates: start: 20220412, end: 20220429
  18. CALCIUM CARBONATE [Concomitant]
     Active Substance: CALCIUM CARBONATE
     Indication: Hypocalcaemia
  19. VITAMIN D2 PHOSPHATE CALCIUM GLUCONATE [Concomitant]
     Indication: Hypocalcaemia
     Dosage: 2 GRAIN,3 IN 1 D
     Route: 048
     Dates: start: 20220430, end: 20220526
  20. TAMSULOSIN HYDROCHLORIDE sUSTAINED-RELEASE CAPSULE [Concomitant]
     Indication: Benign prostatic hyperplasia
     Dosage: 1 IN 1 D
     Route: 048
     Dates: start: 20220430, end: 20220612
  21. METFORMIN HYDROCHLORIDE [Concomitant]
     Active Substance: METFORMIN HYDROCHLORIDE
     Indication: Diabetes mellitus
     Dosage: 1 IN 1 D
     Route: 048
     Dates: start: 20220508
  22. COMPOUND METHOXAMINE [Concomitant]
     Indication: Pneumonia
     Dosage: 1 IN 1 D
     Route: 049
     Dates: start: 20220512
  23. FEBUXOSTAT [Concomitant]
     Active Substance: FEBUXOSTAT
     Indication: Blood uric acid increased
     Route: 048
     Dates: start: 20220520
  24. GLUTATHIONE [Concomitant]
     Active Substance: GLUTATHIONE
     Indication: Transaminases increased
     Route: 065
     Dates: start: 20220430, end: 20220506
  25. PANTOPRAZOLE [Concomitant]
     Active Substance: PANTOPRAZOLE
     Indication: Gastric disorder
     Route: 065
     Dates: start: 20220430, end: 20220525
  26. SODIUM BICARBONATE [Concomitant]
     Active Substance: SODIUM BICARBONATE
     Indication: Gastric disorder
     Route: 041
     Dates: start: 20220430, end: 20220506

REACTIONS (2)
  - Gastrointestinal infection [Recovered/Resolved]
  - Platelet count decreased [Not Recovered/Not Resolved]

NARRATIVE: CASE EVENT DATE: 20220425
